FAERS Safety Report 8952699 (Version 1)
Quarter: 2012Q4

REPORT INFORMATION
  Report Type: 
  Country: DK (occurrence: NZ)
  Receive Date: 20121205
  Receipt Date: 20121205
  Transmission Date: 20130627
  Serious: Yes (Hospitalization)
  Sender: FDA-Public Use
  Company Number: NZ-FRI-1000040815

PATIENT
  Age: 82 Year
  Sex: Female

DRUGS (9)
  1. CITALOPRAM [Suspect]
     Dosage: 10 mg
  2. PANTOPRAZOLE [Interacting]
     Dosage: 40 mg
  3. TRIMETHOPRIM [Concomitant]
  4. WARFARIN [Concomitant]
  5. SIMVASTATIN [Concomitant]
  6. METOPROLOL CR [Concomitant]
  7. DILTIAZEM [Concomitant]
  8. DIGOXIN [Concomitant]
  9. ASPIRIN [Concomitant]

REACTIONS (4)
  - Hyponatraemia [Unknown]
  - Confusional state [Unknown]
  - Fall [Unknown]
  - Drug interaction [Unknown]
